FAERS Safety Report 23507065 (Version 1)
Quarter: 2024Q1

REPORT INFORMATION
  Report Type: Report from Study
  Country: US (occurrence: US)
  Receive Date: 20240209
  Receipt Date: 20240209
  Transmission Date: 20240410
  Serious: No
  Sender: FDA-Public Use
  Company Number: US-BIOVITRUM-2024-US-000799

PATIENT
  Age: 47 Year
  Sex: Female

DRUGS (3)
  1. DOPTELET [Suspect]
     Active Substance: AVATROMBOPAG MALEATE
     Indication: Menopause
     Dosage: DAILY
     Route: 048
     Dates: start: 202310, end: 20231006
  2. DOPTELET [Suspect]
     Active Substance: AVATROMBOPAG MALEATE
     Indication: Hypothyroidism
  3. DOPTELET [Suspect]
     Active Substance: AVATROMBOPAG MALEATE
     Indication: Immune thrombocytopenia

REACTIONS (4)
  - Platelet count increased [Unknown]
  - Headache [Unknown]
  - Abdominal pain [Unknown]
  - Abdominal discomfort [Unknown]
